FAERS Safety Report 14971891 (Version 3)
Quarter: 2018Q2

REPORT INFORMATION
  Report Type: Report from Study
  Country: FR (occurrence: FR)
  Receive Date: 20180605
  Receipt Date: 20180621
  Transmission Date: 20180711
  Serious: Yes (Hospitalization)
  Sender: FDA-Public Use
  Company Number: FR-ROCHE-2131574

PATIENT
  Age: 61 Year
  Sex: Female

DRUGS (6)
  1. BEVACIZUMAB. [Suspect]
     Active Substance: BEVACIZUMAB
     Dosage: AS PER PROTOCOL: BEVACIZUMAB (15MG/KG, DAY 1).?MOST RECENT DOSE OF BEVACIZUMAB PRIOR TO EVENT ONSET
     Route: 042
  2. BLINDED ATEZOLIZUMAB [Suspect]
     Active Substance: ATEZOLIZUMAB
     Indication: OVARIAN CANCER
     Dosage: AS PER PROTOCOL: BLINDED ATEZOLIZUMAB (DAY 1 AND 15) X 6 CYCLES EVERY 4WEEK.?MOST RECENT DOSE OF BLI
     Route: 042
     Dates: start: 20170918
  3. BLINDED ATEZOLIZUMAB [Suspect]
     Active Substance: ATEZOLIZUMAB
     Dosage: MOST RECENT DOSE OF BLINDED ATEZOLIZUMAB PRIOR TO EVENT ONSET WAS ON 24/APR/2018.
     Route: 042
  4. BEVACIZUMAB. [Suspect]
     Active Substance: BEVACIZUMAB
     Indication: OVARIAN CANCER
     Dosage: AS PER PROTOCOL: BEVACIZUMAB (10MG/KG, DAY 1 AND 15).?MOST RECENT DOSE OF BEVACIZUMAB PRIOR TO EVENT
     Route: 042
     Dates: start: 20170918
  5. DOXORUBICIN [Suspect]
     Active Substance: DOXORUBICIN
     Indication: OVARIAN CANCER
     Dosage: (AS PER PROTOCOL: PEGYLATED LIPOSOMAL DOXORUBICIN (PLD) (30 MG/M2, DAY1))??MOST RECENT DOSE OF DOXOR
     Route: 042
     Dates: start: 20170918
  6. CARBOPLATIN. [Suspect]
     Active Substance: CARBOPLATIN
     Indication: OVARIAN CANCER
     Dosage: (AS PER PROTOCOL: CARBOPLATIN (AUC = 5, DAY 1))?MOST RECENT DOSE OF CARBOPLATIN PRIOR TO EVENT ONSET
     Route: 042
     Dates: start: 20170918

REACTIONS (4)
  - Fatigue [Recovered/Resolved]
  - Hypothyroidism [Recovered/Resolved]
  - Acute kidney injury [Recovered/Resolved]
  - Vomiting [Recovered/Resolved]

NARRATIVE: CASE EVENT DATE: 20180515
